FAERS Safety Report 13225124 (Version 2)
Quarter: 2017Q2

REPORT INFORMATION
  Report Type: Spontaneous
  Country: CA (occurrence: CA)
  Receive Date: 20170213
  Receipt Date: 20170508
  Transmission Date: 20170830
  Serious: No
  Sender: FDA-Public Use
  Company Number: CA-ROCHE-1892059

PATIENT
  Age: 47 Year
  Sex: Male

DRUGS (12)
  1. ADVAIR HFA [Concomitant]
     Active Substance: FLUTICASONE PROPIONATE\SALMETEROL XINAFOATE
     Indication: PRODUCT USED FOR UNKNOWN INDICATION
     Route: 065
  2. XOLAIR [Suspect]
     Active Substance: OMALIZUMAB
     Dosage: UNK
     Route: 058
     Dates: start: 20151007
  3. XOLAIR [Suspect]
     Active Substance: OMALIZUMAB
     Dosage: UNK
     Route: 058
     Dates: start: 20160720
  4. VENTOLIN [Concomitant]
     Active Substance: ALBUTEROL SULFATE
     Indication: PRODUCT USED FOR UNKNOWN INDICATION
     Route: 065
  5. XOLAIR [Suspect]
     Active Substance: OMALIZUMAB
     Indication: ASTHMA
     Route: 058
     Dates: start: 20150130
  6. XOLAIR [Suspect]
     Active Substance: OMALIZUMAB
     Dosage: UNK
     Route: 058
     Dates: start: 20160120
  7. ALVESCO [Concomitant]
     Active Substance: CICLESONIDE
     Indication: PRODUCT USED FOR UNKNOWN INDICATION
     Route: 065
  8. XOLAIR [Suspect]
     Active Substance: OMALIZUMAB
     Dosage: UNK
     Route: 058
     Dates: start: 20160427
  9. MONTELUKAST [Concomitant]
     Active Substance: MONTELUKAST SODIUM
     Indication: PRODUCT USED FOR UNKNOWN INDICATION
     Route: 065
  10. XOLAIR [Suspect]
     Active Substance: OMALIZUMAB
     Dosage: UNK
     Route: 058
     Dates: start: 20150327
  11. XOLAIR [Suspect]
     Active Substance: OMALIZUMAB
     Route: 058
     Dates: start: 20161221
  12. XOLAIR [Suspect]
     Active Substance: OMALIZUMAB
     Dosage: UNK
     Route: 058
     Dates: start: 20160302

REACTIONS (18)
  - Discomfort [Recovering/Resolving]
  - Nasal congestion [Recovering/Resolving]
  - Abdominal discomfort [Recovering/Resolving]
  - Lower respiratory tract congestion [Recovering/Resolving]
  - Back pain [Recovering/Resolving]
  - Insomnia [Unknown]
  - Pollakiuria [Recovering/Resolving]
  - Gait disturbance [Unknown]
  - Confusional state [Unknown]
  - Abdominal distension [Recovering/Resolving]
  - Diarrhoea [Recovering/Resolving]
  - Dyspnoea [Unknown]
  - Heart rate increased [Unknown]
  - Amnesia [Unknown]
  - Malaise [Recovering/Resolving]
  - Blood pressure increased [Unknown]
  - Chest pain [Recovering/Resolving]
  - Abdominal pain upper [Unknown]

NARRATIVE: CASE EVENT DATE: 201503
